FAERS Safety Report 17741581 (Version 1)
Quarter: 2020Q2

REPORT INFORMATION
  Report Type: Spontaneous
  Country: US (occurrence: US)
  Receive Date: 20200504
  Receipt Date: 20200504
  Transmission Date: 20200714
  Serious: Yes (Hospitalization, Other)
  Sender: FDA-Public Use
  Company Number: US-PFIZER INC-2020153511

PATIENT
  Age: 60 Year
  Sex: Male
  Weight: 54.43 kg

DRUGS (1)
  1. ZYVOX [Suspect]
     Active Substance: LINEZOLID
     Indication: STAPHYLOCOCCAL INFECTION
     Dosage: 600 MG, 2X/DAY
     Route: 048
     Dates: start: 201909

REACTIONS (10)
  - Disease recurrence [Unknown]
  - Fatigue [Unknown]
  - Off label use [Unknown]
  - Pain [Unknown]
  - Renal abscess [Unknown]
  - Pyrexia [Unknown]
  - Joint stiffness [Unknown]
  - Influenza [Unknown]
  - Product prescribing issue [Unknown]
  - Staphylococcal infection [Unknown]

NARRATIVE: CASE EVENT DATE: 20200326
